FAERS Safety Report 4395714-6 (Version None)
Quarter: 2004Q3

REPORT INFORMATION
  Report Type: 
  Country: None (occurrence: None)
  Receive Date: 20040708
  Receipt Date: 20040629
  Transmission Date: 20050211
  Serious: Yes (Other)
  Sender: FDA-Public Use
  Company Number: US-JNJFOC-20040700564

PATIENT
  Age: 50 Year
  Sex: Male

DRUGS (1)
  1. MOTRIN [Suspect]
     Indication: BONE PAIN
     Dosage: 400 MG, 2 IN 1 DAY, ORAL
     Route: 048
     Dates: start: 20010901, end: 20020201

REACTIONS (4)
  - HENOCH-SCHONLEIN PURPURA [None]
  - IRON DEFICIENCY ANAEMIA [None]
  - RENAL IMPAIRMENT [None]
  - SWELLING [None]
